FAERS Safety Report 24401640 (Version 1)
Quarter: 2024Q4

REPORT INFORMATION
  Report Type: Spontaneous
  Country: BR (occurrence: BR)
  Receive Date: 20241007
  Receipt Date: 20241007
  Transmission Date: 20250115
  Serious: Yes (Death, Hospitalization)
  Sender: ACCORD
  Company Number: BR-Accord-449152

PATIENT
  Age: 50 Year
  Sex: Male

DRUGS (1)
  1. PACLITAXEL [Suspect]
     Active Substance: PACLITAXEL
     Indication: Ductal adenocarcinoma of pancreas
     Route: 042
     Dates: start: 20240828, end: 20240828

REACTIONS (14)
  - Back pain [Fatal]
  - Hypertension [Fatal]
  - Confusional state [Fatal]
  - Slow speech [Fatal]
  - Asthenia [Fatal]
  - General physical health deterioration [Fatal]
  - Decreased appetite [Fatal]
  - Dyspnoea [Fatal]
  - Ascites [Fatal]
  - Hepatomegaly [Fatal]
  - Pain [Fatal]
  - Weight decreased [Fatal]
  - Somnolence [Fatal]
  - Off label use [Unknown]

NARRATIVE: CASE EVENT DATE: 20240828
